FAERS Safety Report 15526496 (Version 1)
Quarter: 2018Q4

REPORT INFORMATION
  Report Type: Spontaneous
  Country: US (occurrence: US)
  Receive Date: 20181018
  Receipt Date: 20181018
  Transmission Date: 20190205
  Serious: No
  Sender: FDA-Public Use
  Company Number: US-LANNETT COMPANY, INC.-US-2017LAN001096

PATIENT

DRUGS (1)
  1. LEVOTHYROXINE SODIUM. [Suspect]
     Active Substance: LEVOTHYROXINE SODIUM
     Indication: PRODUCT USED FOR UNKNOWN INDICATION
     Dosage: 112 ?G, UNK
     Dates: start: 20171001, end: 20171003

REACTIONS (3)
  - Visual field defect [Unknown]
  - Nausea [Unknown]
  - Migraine [Unknown]

NARRATIVE: CASE EVENT DATE: 20171001
